FAERS Safety Report 8934481 (Version 1)
Quarter: 2012Q4

REPORT INFORMATION
  Report Type: 
  Country: US (occurrence: US)
  Receive Date: 20121129
  Receipt Date: 20121129
  Transmission Date: 20130627
  Serious: No
  Sender: FDA-Public Use
  Company Number: US-GLAXOSMITHKLINE-A0947979A

PATIENT
  Age: 82 Year
  Sex: Female

DRUGS (6)
  1. FLOVENT [Suspect]
     Indication: ASTHMA
     Dosage: 1PUFF Twice per day
     Route: 055
     Dates: start: 20111004, end: 20111005
  2. LORAZEPAM [Concomitant]
  3. LIPITOR [Concomitant]
  4. BABY ASPIRIN [Concomitant]
  5. MULTI VITAMIN [Concomitant]
  6. LEXAPRO [Concomitant]

REACTIONS (1)
  - Urticaria [Not Recovered/Not Resolved]
